FAERS Safety Report 11170704 (Version 1)
Quarter: 2015Q2

REPORT INFORMATION
  Report Type: Spontaneous
  Country: US (occurrence: US)
  Receive Date: 20150608
  Receipt Date: 20150608
  Transmission Date: 20150821
  Serious: Yes (Hospitalization)
  Sender: FDA-Public Use
  Company Number: US-SA-2015SA077371

PATIENT
  Sex: Male
  Weight: 91.62 kg

DRUGS (12)
  1. LOVENOX [Suspect]
     Active Substance: ENOXAPARIN SODIUM
     Indication: THROMBOSIS
     Route: 065
  2. VITAMIN D [Concomitant]
     Active Substance: CHOLECALCIFEROL
  3. IRON [Concomitant]
     Active Substance: IRON
  4. OXYCODONE [Concomitant]
     Active Substance: OXYCODONE
  5. VITAMIN C [Concomitant]
     Active Substance: ASCORBIC ACID
  6. METOPROLOL [Concomitant]
     Active Substance: METOPROLOL
  7. XGEVA [Concomitant]
     Active Substance: DENOSUMAB
  8. ZOLPIDEM [Concomitant]
     Active Substance: ZOLPIDEM\ZOLPIDEM TARTRATE
  9. TAMSULOSIN [Concomitant]
     Active Substance: TAMSULOSIN
  10. OMEPRAZOLE. [Concomitant]
     Active Substance: OMEPRAZOLE
  11. IMODIUM [Concomitant]
     Active Substance: LOPERAMIDE HYDROCHLORIDE
  12. LOVENOX [Concomitant]
     Active Substance: ENOXAPARIN SODIUM

REACTIONS (9)
  - Weight decreased [Unknown]
  - Diarrhoea [Unknown]
  - Hospitalisation [Unknown]
  - Dizziness [Unknown]
  - Contusion [Unknown]
  - Dysgeusia [Not Recovered/Not Resolved]
  - Oral pain [Unknown]
  - Haemoglobin decreased [Unknown]
  - Appetite disorder [Unknown]

NARRATIVE: CASE EVENT DATE: 2015
